FAERS Safety Report 13301609 (Version 2)
Quarter: 2017Q1

REPORT INFORMATION
  Report Type: Spontaneous
  Country: AR (occurrence: AR)
  Receive Date: 20170307
  Receipt Date: 20170308
  Transmission Date: 20170428
  Serious: Yes (Other)
  Sender: FDA-Public Use
  Company Number: AR-009507513-1703ARG001247

PATIENT
  Sex: Female

DRUGS (1)
  1. PROPECIA [Suspect]
     Active Substance: FINASTERIDE
     Indication: ALOPECIA
     Dosage: 1 DF, QD (1 TABLET, DAILY)
     Route: 048

REACTIONS (6)
  - Drug dependence [Unknown]
  - Product use issue [Unknown]
  - Hair texture abnormal [Unknown]
  - Hair disorder [Unknown]
  - Liver disorder [Unknown]
  - Circumstance or information capable of leading to medication error [Unknown]
